FAERS Safety Report 8970176 (Version 1)
Quarter: 2012Q4

REPORT INFORMATION
  Report Type: 
  Country: AU (occurrence: AU)
  Receive Date: 20121218
  Receipt Date: 20121218
  Transmission Date: 20130627
  Serious: Yes (Hospitalization, Other)
  Sender: FDA-Public Use
  Company Number: AU-PFIZER INC-2012316912

PATIENT
  Age: 32 Year
  Sex: Male

DRUGS (1)
  1. PHENYTOIN [Suspect]
     Dosage: UNK

REACTIONS (9)
  - Drug hypersensitivity [Unknown]
  - Exfoliative rash [Unknown]
  - Mouth ulceration [Unknown]
  - Eosinophilia [Unknown]
  - Lymphadenopathy [Unknown]
  - Pyrexia [Unknown]
  - Diarrhoea [Unknown]
  - Hepatitis [Unknown]
  - Human herpesvirus 6 infection [Unknown]
